FAERS Safety Report 8181383-6 (Version None)
Quarter: 2012Q1

REPORT INFORMATION
  Report Type: 
  Country: None (occurrence: None)
  Receive Date: 20120302
  Receipt Date: 20120229
  Transmission Date: 20120608
  Serious: Yes (Life-Threatening)
  Sender: FDA-Public Use
  Company Number: DE-ELI_LILLY_AND_COMPANY-DE201103001300

PATIENT
  Sex: Male

DRUGS (1)
  1. H7T-MC-TADF PH III PRE-TREATMENT [Suspect]
     Indication: ACUTE MYOCARDIAL INFARCTION
     Dosage: 30 MG, ONCE
     Route: 048
     Dates: start: 20110302, end: 20110302

REACTIONS (1)
  - ACUTE MYOCARDIAL INFARCTION [None]
